FAERS Safety Report 8829027 (Version 1)
Quarter: 2012Q4

REPORT INFORMATION
  Report Type: 
  Country: US (occurrence: US)
  Receive Date: 20121009
  Receipt Date: 20121009
  Transmission Date: 20130627
  Serious: No
  Sender: FDA-Public Use
  Company Number: US-BIOGENIDEC-2012BI041808

PATIENT
  Age: 41 Year
  Sex: Female

DRUGS (3)
  1. TYSABRI [Suspect]
     Indication: MULTIPLE SCLEROSIS
     Route: 042
     Dates: start: 20080502, end: 20120703
  2. LEXAPRO [Concomitant]
     Indication: DEPRESSION
  3. CITALOPRAM [Concomitant]
     Indication: DEPRESSION

REACTIONS (1)
  - Depressed mood [Not Recovered/Not Resolved]
